FAERS Safety Report 4399027-8 (Version None)
Quarter: 2004Q3

REPORT INFORMATION
  Report Type: 
  Country: None (occurrence: None)
  Receive Date: 20040712
  Receipt Date: 20040622
  Transmission Date: 20050211
  Serious: Yes (Other)
  Sender: FDA-Public Use
  Company Number: USA040670874

PATIENT
  Sex: Male

DRUGS (2)
  1. HUMATROPE [Suspect]
     Indication: HYPOTHALAMO-PITUITARY DISORDERS
     Dosage: 4 MG DAY
     Dates: start: 19950401, end: 20031001
  2. SYNTHROID [Concomitant]

REACTIONS (3)
  - BALANCE DISORDER [None]
  - BRAIN NEOPLASM [None]
  - HEADACHE [None]
